FAERS Safety Report 6967643-2 (Version None)
Quarter: 2010Q3

REPORT INFORMATION
  Report Type: 
  Country: None (occurrence: None)
  Receive Date: 20100901
  Receipt Date: 20100819
  Transmission Date: 20110219
  Serious: Yes (Life-Threatening, Hospitalization)
  Sender: FDA-Public Use
  Company Number: 2010PL000139

PATIENT
  Age: 49 Year
  Sex: Female

DRUGS (2)
  1. PROLEUKIN FOR INJECTION (ALDESLEUKIN) [Suspect]
     Indication: GASTRIC CANCER
     Dosage: 41 MU;IV
     Route: 042
     Dates: start: 20081125
  2. FLUDARABINE PHOSPHATE [Suspect]
     Indication: GASTRIC CANCER
     Dosage: 44 MG;QD;IV
     Route: 042
     Dates: start: 20081120, end: 20081124

REACTIONS (20)
  - BRAIN OEDEMA [None]
  - EPISTAXIS [None]
  - FATIGUE [None]
  - FEEDING TUBE COMPLICATION [None]
  - FLUID OVERLOAD [None]
  - HAEMORRHAGE INTRACRANIAL [None]
  - HYPOTENSION [None]
  - IMMOBILE [None]
  - LIVER FUNCTION TEST ABNORMAL [None]
  - LUNG CONSOLIDATION [None]
  - MUSCULAR WEAKNESS [None]
  - NEUTROPENIC SEPSIS [None]
  - OXYGEN SATURATION DECREASED [None]
  - PLEURAL EFFUSION [None]
  - PNEUMOTHORAX [None]
  - POST PROCEDURAL HAEMORRHAGE [None]
  - PULMONARY OEDEMA [None]
  - PYREXIA [None]
  - THROMBOCYTOPENIA [None]
  - WHITE BLOOD CELL COUNT DECREASED [None]
